FAERS Safety Report 7590562-8 (Version None)
Quarter: 2011Q3

REPORT INFORMATION
  Report Type: 
  Country: None (occurrence: None)
  Receive Date: 20110705
  Receipt Date: 20110622
  Transmission Date: 20111222
  Serious: Yes (Hospitalization, Other)
  Sender: FDA-Public Use
  Company Number: US-ELI_LILLY_AND_COMPANY-US201102002278

PATIENT
  Sex: Female

DRUGS (5)
  1. VITAMIN TAB [Concomitant]
     Dosage: UNK, DAILY (1/D)
  2. FORTEO [Suspect]
     Indication: OSTEOPOROSIS
     Dosage: 20 UG, DAILY (1/D)
  3. FORTEO [Suspect]
     Dosage: 20 UG, QD
  4. BENAZEPRIL HYDROCHLORIDE [Concomitant]
     Dosage: 20 MG, DAILY (1/D)
  5. NORVASC [Concomitant]
     Indication: BLOOD PRESSURE ABNORMAL

REACTIONS (7)
  - PAIN [None]
  - DEPRESSION [None]
  - MOVEMENT DISORDER [None]
  - STRESS FRACTURE [None]
  - NERVOUSNESS [None]
  - BLOOD PRESSURE INCREASED [None]
  - THROMBOSIS [None]
